FAERS Safety Report 14077549 (Version 1)
Quarter: 2017Q4

REPORT INFORMATION
  Report Type: Spontaneous
  Country: DE (occurrence: DE)
  Receive Date: 20171012
  Receipt Date: 20171012
  Transmission Date: 20180321
  Serious: Yes (Hospitalization)
  Sender: FDA-Public Use
  Company Number: DE-CIPLA LTD.-2016DE15280

PATIENT

DRUGS (10)
  1. OXALIPLATIN. [Suspect]
     Active Substance: OXALIPLATIN
     Indication: METASTASES TO PERITONEUM
  2. SODIUM FOLINIC ACID [Suspect]
     Active Substance: LEUCOVORIN
     Indication: METASTASES TO LIVER
     Dosage: UNK, PALLIATIVE SECOND LINE TREATMENT, THREE CYCLES
     Route: 065
  3. OXALIPLATIN. [Suspect]
     Active Substance: OXALIPLATIN
     Indication: METASTASES TO LIVER
     Dosage: 85 MG/M2, EVERY SECOND WEEK
  4. SODIUM FOLINIC ACID [Suspect]
     Active Substance: LEUCOVORIN
     Dosage: UNK, PALLIATIVE FOURTH LINE TREATMENT, ONE CYCLES OVER TWO WEEKS
     Route: 065
  5. SODIUM FOLINIC ACID [Suspect]
     Active Substance: LEUCOVORIN
     Indication: METASTASES TO PERITONEUM
     Dosage: 500 MG/M2, 24 HOUR INFUSION, EVERY SECOND WEEK
  6. FLUOROURACIL. [Suspect]
     Active Substance: FLUOROURACIL
     Indication: METASTASES TO PERITONEUM
     Dosage: UNK, PALLIATIVE SECOND LINE TREATMENT, THREE CYCLES
     Route: 065
  7. FLUOROURACIL. [Suspect]
     Active Substance: FLUOROURACIL
     Indication: METASTASES TO LIVER
     Dosage: 2000 MG/M2, 24 HOUR, EVERY SECOND WEEK
  8. SODIUM FOLINIC ACID [Suspect]
     Active Substance: LEUCOVORIN
     Dosage: UNK, PALLIATIVE THIRD LINE TREATMENT, ONE CYCLES
     Route: 065
  9. FLUOROURACIL. [Suspect]
     Active Substance: FLUOROURACIL
     Dosage: UNK, PALLIATIVE THIRD LINE TREATMENT, ONE CYCLES
     Route: 065
  10. FLUOROURACIL. [Suspect]
     Active Substance: FLUOROURACIL
     Dosage: UNK, PALLIATIVE FOURTH LINE TREATMENT, ONE CYCLES OVER TWO WEEKS
     Route: 065

REACTIONS (1)
  - Pulmonary granuloma [Recovered/Resolved]
